FAERS Safety Report 8335922-2 (Version None)
Quarter: 2012Q2

REPORT INFORMATION
  Report Type: 
  Country: None (occurrence: None)
  Receive Date: 20120504
  Receipt Date: 20120501
  Transmission Date: 20120825
  Serious: No
  Sender: FDA-Public Use
  Company Number: US-PFIZER INC-2012107926

PATIENT
  Sex: Male

DRUGS (3)
  1. NORVASC [Interacting]
     Dosage: UNK
  2. LOSARTAN POTASSIUM [Interacting]
     Dosage: 50 MG, UNK
     Dates: start: 20120401
  3. TIKOSYN [Suspect]
     Dosage: UNK
     Route: 048
     Dates: start: 20110101

REACTIONS (3)
  - HYPERTENSION [None]
  - DRUG INEFFECTIVE [None]
  - DRUG INTERACTION [None]
